FAERS Safety Report 14259494 (Version 1)
Quarter: 2017Q4

REPORT INFORMATION
  Report Type: Spontaneous
  Country: CN (occurrence: CN)
  Receive Date: 20171207
  Receipt Date: 20171207
  Transmission Date: 20180321
  Serious: Yes (Other)
  Sender: FDA-Public Use
  Company Number: CN-JNJFOC-20171200211

PATIENT

DRUGS (2)
  1. RISPERDAL [Suspect]
     Active Substance: RISPERIDONE
     Indication: SCHIZOPHRENIA
     Dosage: GRADUALLY INCREASED TO 2 TO 6 MG PER DAY WITHIN ONE WEEK
     Route: 048
  2. RISPERDAL [Suspect]
     Active Substance: RISPERIDONE
     Indication: SCHIZOPHRENIA
     Route: 048

REACTIONS (7)
  - Insomnia [Unknown]
  - Dizziness [Unknown]
  - Hypokalaemia [Unknown]
  - Constipation [Unknown]
  - Akathisia [Unknown]
  - Extrapyramidal disorder [Unknown]
  - Agitation [Unknown]
